FAERS Safety Report 6295365-2 (Version None)
Quarter: 2009Q3

REPORT INFORMATION
  Report Type: 
  Country: None (occurrence: None)
  Receive Date: 20090803
  Receipt Date: 20090727
  Transmission Date: 20100115
  Serious: Yes (Hospitalization)
  Sender: FDA-Public Use
  Company Number: US-AMGEN-QUU355751

PATIENT
  Sex: Female

DRUGS (2)
  1. ENBREL [Suspect]
     Indication: RHEUMATOID ARTHRITIS
     Route: 058
     Dates: start: 20040315
  2. METHOTREXATE [Concomitant]
     Route: 048

REACTIONS (4)
  - ARTHRITIS [None]
  - GASTRIC BYPASS [None]
  - GASTRIC ULCER [None]
  - POST PROCEDURAL COMPLICATION [None]
